FAERS Safety Report 6761386-6 (Version None)
Quarter: 2010Q2

REPORT INFORMATION
  Report Type: 
  Country: None (occurrence: None)
  Receive Date: 20100607
  Receipt Date: 20100525
  Transmission Date: 20101027
  Serious: Yes (Other)
  Sender: FDA-Public Use
  Company Number: 7006237

PATIENT
  Age: 30 Year
  Sex: Male

DRUGS (2)
  1. REBIF [Suspect]
     Indication: RELAPSING-REMITTING MULTIPLE SCLEROSIS
     Dosage: 44 MCG, 3 IN 1 WK, SUBCUTANEOUS
     Route: 058
     Dates: start: 20040430
  2. AMITRIPTYLINE HYDROCHLORIDE [Concomitant]

REACTIONS (8)
  - DIABETES MELLITUS [None]
  - DRUG DOSE OMISSION [None]
  - HYPERGLYCAEMIA [None]
  - MUSCLE TWITCHING [None]
  - NERVOUSNESS [None]
  - SLEEP DISORDER [None]
  - SUICIDE ATTEMPT [None]
  - VISUAL IMPAIRMENT [None]
